FAERS Safety Report 5400511-6 (Version None)
Quarter: 2007Q3

REPORT INFORMATION
  Report Type: 
  Country: None (occurrence: None)
  Receive Date: 20070730
  Receipt Date: 20070724
  Transmission Date: 20080115
  Serious: Yes (Hospitalization)
  Sender: FDA-Public Use
  Company Number: JP-BAYER-200710386BYL

PATIENT
  Age: 78 Year
  Sex: Female

DRUGS (6)
  1. GLUCOBAY [Suspect]
     Indication: TYPE 2 DIABETES MELLITUS
     Route: 048
     Dates: start: 20061017, end: 20070320
  2. AMARYL [Concomitant]
     Route: 048
     Dates: start: 20030702, end: 20070320
  3. MEDET [Concomitant]
     Route: 048
     Dates: start: 20051129, end: 20070320
  4. ASPIRIN [Concomitant]
     Dosage: TOTAL DAILY DOSE: 100 MG  UNIT DOSE: 100 MG
     Route: 048
     Dates: start: 20041116, end: 20070406
  5. THYRADIN S [Concomitant]
     Route: 048
     Dates: start: 19720101
  6. LIPITOR [Concomitant]
     Route: 048

REACTIONS (1)
  - PEMPHIGOID [None]
